FAERS Safety Report 25799087 (Version 1)
Quarter: 2025Q3

REPORT INFORMATION
  Report Type: Spontaneous
  Country: US (occurrence: US)
  Receive Date: 20250913
  Receipt Date: 20250913
  Transmission Date: 20251021
  Serious: No
  Sender: ABBVIE
  Company Number: US-ABBVIE-6447390

PATIENT
  Age: 78 Year
  Sex: Female

DRUGS (3)
  1. CYCLOSPORINE [Suspect]
     Active Substance: CYCLOSPORINE
     Indication: Eye inflammation
     Dosage: FORM STRENGTH 0.05% OPHTHALMIC EMULSION?DOSE: 1 DROP IN EACH TWICE A DAY, START DATE12-AUG-2025 O...
     Route: 047
     Dates: start: 202508, end: 202508
  2. CYCLOSPORINE [Suspect]
     Active Substance: CYCLOSPORINE
     Dosage: FORM STRENGTH 0.05% OPHTHALMIC EMULSION?DOSE: 1 DROP IN EACH TWICE A DAY
     Route: 047
     Dates: start: 202508, end: 20250901
  3. IVIZIA DRY EYE [Concomitant]
     Active Substance: POVIDONE
     Indication: Dry eye
     Dosage: 1 DROP IN EACH TWICE A DAY
     Route: 047

REACTIONS (5)
  - Abnormal sensation in eye [Not Recovered/Not Resolved]
  - Burning sensation [Not Recovered/Not Resolved]
  - Eye pain [Not Recovered/Not Resolved]
  - Lacrimation increased [Not Recovered/Not Resolved]
  - Eye pain [Not Recovered/Not Resolved]

NARRATIVE: CASE EVENT DATE: 20250801
